FAERS Safety Report 7552218-7 (Version None)
Quarter: 2011Q2

REPORT INFORMATION
  Report Type: 
  Country: None (occurrence: None)
  Receive Date: 20110616
  Receipt Date: 20031126
  Transmission Date: 20111010
  Serious: Yes (Hospitalization)
  Sender: FDA-Public Use
  Company Number: PHHO2003JP13611

PATIENT
  Sex: Female

DRUGS (12)
  1. LANSOPRAZOLE [Concomitant]
     Indication: REFLUX OESOPHAGITIS
     Dosage: 15 MG, UNK
     Route: 048
  2. WYTENS                                  /JPN/ [Concomitant]
     Indication: HYPERTENSION
     Dosage: 4 MG, UNK
     Route: 048
  3. SENNOSIDE A [Concomitant]
     Indication: CONSTIPATION
     Dosage: 24 MG, UNK
     Route: 048
  4. ZYRTEC [Concomitant]
     Indication: PRURITUS
     Dosage: UNK, UNK
     Route: 048
     Dates: start: 20021106
  5. SELBEX [Concomitant]
     Indication: GASTRITIS
     Dosage: 60 MG, UNK
     Route: 048
  6. SLOW-K [Concomitant]
     Indication: HYPOKALAEMIA
     Dosage: 600 MG, UNK
     Route: 048
  7. LASIX [Concomitant]
     Indication: HYPERTENSION
     Dosage: 40 MG, UNK
     Route: 048
  8. CELTECT [Concomitant]
     Indication: PRURITUS
     Dosage: 60 MG, UNK
     Route: 048
  9. ANTIBIOTICS [Suspect]
  10. AMLODIPINE [Concomitant]
     Indication: HYPERTENSION
     Dosage: 10 MG, UNK
     Route: 048
  11. TOWARAT [Concomitant]
     Indication: HYPOTENSION
     Dosage: 40 MG, UNK
     Route: 048
  12. LOCHOLEST [Suspect]
     Indication: HYPERCHOLESTEROLAEMIA
     Dosage: 20 MG, QD
     Route: 048
     Dates: start: 20030115

REACTIONS (3)
  - PNEUMONIA [None]
  - EROSIVE DUODENITIS [None]
  - EROSIVE OESOPHAGITIS [None]
